FAERS Safety Report 7369209-1 (Version None)
Quarter: 2011Q1

REPORT INFORMATION
  Report Type: 
  Country: None (occurrence: None)
  Receive Date: 20110323
  Receipt Date: 20110311
  Transmission Date: 20110831
  Serious: Yes (Hospitalization)
  Sender: FDA-Public Use
  Company Number: US-CELGENEUS-163-21880-11031576

PATIENT
  Sex: Male
  Weight: 82.9 kg

DRUGS (9)
  1. INSULIN [Concomitant]
     Dosage: 100 UNITS
     Route: 065
  2. LEVETIRACETAM [Concomitant]
     Dosage: 250 MG/HALF TAB
     Route: 048
  3. LASIX [Concomitant]
     Dosage: 20 MILLIGRAM
     Route: 065
  4. REVLIMID [Suspect]
     Indication: MULTIPLE MYELOMA
     Dosage: 25 MILLIGRAM
     Route: 048
     Dates: start: 20080101, end: 20110204
  5. DEXAMETHASONE [Concomitant]
     Dosage: 2 MG/HALF TAB
     Route: 048
  6. OXYCODONE [Concomitant]
     Route: 065
  7. FENTANYL [Concomitant]
     Dosage: 50 MICROGRAM
     Route: 062
  8. METOPROLOL [Concomitant]
     Dosage: 50 MILLIGRAM
     Route: 065
  9. PROCRIT [Concomitant]
     Dosage: 40000 IU (INTERNATIONAL UNIT)
     Route: 065

REACTIONS (3)
  - DRUG INEFFECTIVE [None]
  - MULTIPLE MYELOMA [None]
  - MENTAL STATUS CHANGES [None]
